FAERS Safety Report 7527891-X (Version None)
Quarter: 2011Q2

REPORT INFORMATION
  Report Type: 
  Country: None (occurrence: None)
  Receive Date: 20110607
  Receipt Date: 20110527
  Transmission Date: 20111010
  Serious: Yes (Hospitalization)
  Sender: FDA-Public Use
  Company Number: BR-ASTRAZENECA-2011SE33238

PATIENT
  Age: 76 Year
  Sex: Female

DRUGS (8)
  1. FUROSEMIDE [Concomitant]
     Route: 048
  2. SEROQUEL [Suspect]
     Route: 048
     Dates: start: 20100101
  3. SEROQUEL [Suspect]
     Route: 048
     Dates: start: 20100101
  4. SEROQUEL [Suspect]
     Route: 048
     Dates: start: 20110501
  5. SEROQUEL [Suspect]
     Indication: DEMENTIA ALZHEIMER'S TYPE
     Route: 048
     Dates: start: 20100101, end: 20110501
  6. SEROQUEL [Suspect]
     Indication: PARKINSON'S DISEASE
     Route: 048
     Dates: start: 20100101, end: 20110501
  7. SEROQUEL [Suspect]
     Route: 048
     Dates: start: 20110501
  8. PROLOPA [Concomitant]
     Indication: PARKINSON'S DISEASE
     Route: 048

REACTIONS (6)
  - URINARY TRACT INFECTION [None]
  - OESOPHAGEAL DISORDER [None]
  - PNEUMONIA [None]
  - RENAL DISORDER [None]
  - OFF LABEL USE [None]
  - HALLUCINATION [None]
